FAERS Safety Report 22975443 (Version 4)
Quarter: 2024Q2

REPORT INFORMATION
  Report Type: Report from Study
  Country: ES (occurrence: ES)
  Receive Date: 20230924
  Receipt Date: 20240620
  Transmission Date: 20240716
  Serious: Yes (Hospitalization, Other)
  Sender: FDA-Public Use
  Company Number: ES-ABBVIE-5418746

PATIENT
  Age: 23 Year
  Sex: Female
  Weight: 56 kg

DRUGS (10)
  1. HUMIRA [Suspect]
     Active Substance: ADALIMUMAB
     Indication: Crohn^s disease
     Route: 058
     Dates: start: 20161104, end: 20170510
  2. HUMIRA [Suspect]
     Active Substance: ADALIMUMAB
     Route: 058
     Dates: start: 20170511, end: 20201009
  3. INTESTIFALK [Concomitant]
     Indication: Crohn^s disease
     Route: 048
     Dates: start: 20180903
  4. METAMIZOLE [Concomitant]
     Active Substance: METAMIZOLE
     Indication: Crohn^s disease
     Dosage: TIME INTERVAL: 0.33333333 DAYS
     Route: 048
     Dates: start: 20191011
  5. OMEPRAZOLE [Concomitant]
     Active Substance: DONEPEZIL HYDROCHLORIDE\OMEPRAZOLE\OMEPRAZOLE MAGNESIUM
     Indication: Crohn^s disease
     Route: 048
     Dates: start: 20191011
  6. UREADIN [Concomitant]
     Indication: Erythema
     Dosage: TIME INTERVAL: AS NECESSARY: 10
     Route: 061
     Dates: start: 20200521
  7. MINOXIDIL [Concomitant]
     Active Substance: MINOXIDIL
     Indication: Erythema
     Dosage: TIME INTERVAL: AS NECESSARY: 5%
     Route: 061
     Dates: start: 20200521
  8. AZATHIOPRINE [Suspect]
     Active Substance: AZATHIOPRINE
     Indication: Crohn^s disease
     Route: 048
     Dates: start: 20161104, end: 20170510
  9. AZATHIOPRINE [Suspect]
     Active Substance: AZATHIOPRINE
     Indication: Crohn^s disease
     Route: 048
     Dates: start: 20170511, end: 20230905
  10. AZATHIOPRINE [Suspect]
     Active Substance: AZATHIOPRINE
     Indication: Crohn^s disease
     Route: 048
     Dates: start: 20230910

REACTIONS (3)
  - Morning sickness [Recovered/Resolved]
  - Maternal exposure during pregnancy [Unknown]
  - Abortion induced [Unknown]

NARRATIVE: CASE EVENT DATE: 20230905
